FAERS Safety Report 6086706-X (Version None)
Quarter: 2009Q1

REPORT INFORMATION
  Report Type: 
  Country: None (occurrence: None)
  Receive Date: 20090223
  Receipt Date: 20090212
  Transmission Date: 20090719
  Serious: Yes (Other)
  Sender: FDA-Public Use
  Company Number: PHHY2009SI05012

PATIENT
  Age: 51 Year
  Sex: Female

DRUGS (3)
  1. LIORESAL [Suspect]
     Dosage: UNK
  2. VENTOLIN [Concomitant]
  3. BERODUAL [Concomitant]

REACTIONS (1)
  - ASPHYXIA [None]
